FAERS Safety Report 10080505 (Version 5)
Quarter: 2014Q2

REPORT INFORMATION
  Report Type: Spontaneous
  Country: US (occurrence: US)
  Receive Date: 20140416
  Receipt Date: 20140630
  Transmission Date: 20141212
  Serious: Yes (Hospitalization)
  Sender: FDA-Public Use
  Company Number: US-BIOGENIDEC-2014BI034364

PATIENT
  Age: 56 Year
  Sex: Male
  Weight: 131 kg

DRUGS (12)
  1. TYSABRI [Suspect]
     Indication: MULTIPLE SCLEROSIS
     Route: 042
  2. TYSABRI [Suspect]
     Indication: MULTIPLE SCLEROSIS
     Route: 042
     Dates: start: 20120627
  3. AVONEX [Concomitant]
     Route: 030
     Dates: start: 20101207
  4. IBUPROFEN [Concomitant]
     Route: 048
  5. FLEXERIL [Concomitant]
     Route: 048
  6. METFORMIN [Concomitant]
     Route: 048
  7. ADDERALL [Concomitant]
     Route: 048
  8. MS CONTIN [Concomitant]
  9. MORPHINE [Concomitant]
     Route: 048
  10. TOPAMAX [Concomitant]
     Route: 048
  11. VENLAFAXINE XR [Concomitant]
     Route: 048
  12. VITAMIN D [Concomitant]
     Route: 048

REACTIONS (9)
  - Sepsis [Recovered/Resolved]
  - Myalgia [Recovered/Resolved]
  - Confusional state [Recovered/Resolved]
  - Multiple sclerosis relapse [Recovered/Resolved]
  - Skin ulcer [Unknown]
  - Diplopia [Not Recovered/Not Resolved]
  - Hallucination [Not Recovered/Not Resolved]
  - General physical health deterioration [Unknown]
  - Headache [Not Recovered/Not Resolved]
